FAERS Safety Report 15106411 (Version 2)
Quarter: 2018Q3

REPORT INFORMATION
  Report Type: Report from Study
  Country: None (occurrence: GB)
  Receive Date: 20180704
  Receipt Date: 20180705
  Transmission Date: 20181010
  Serious: Yes (Hospitalization)
  Sender: FDA-Public Use
  Company Number: GB-ABBVIE-18K-167-2404758-00

PATIENT
  Age: 60 Year
  Sex: Male

DRUGS (2)
  1. DUODOPA [Suspect]
     Active Substance: CARBIDOPA\LEVODOPA
     Indication: PARKINSON^S DISEASE
     Dosage: 100 ML 1 CASSETTE DAILY
     Route: 050
     Dates: end: 2018
  2. DUODOPA [Suspect]
     Active Substance: CARBIDOPA\LEVODOPA
     Route: 050
     Dates: end: 2018

REACTIONS (14)
  - Device issue [Unknown]
  - Limb discomfort [Unknown]
  - Hypoaesthesia [Unknown]
  - Parkinson^s disease [Not Recovered/Not Resolved]
  - Product storage error [Unknown]
  - Myoclonus [Unknown]
  - Device occlusion [Unknown]
  - Paraesthesia [Unknown]
  - Stoma site infection [Recovered/Resolved]
  - Peripheral swelling [Unknown]
  - Gastrointestinal disorder [Recovered/Resolved]
  - Renal injury [Unknown]
  - Abdominal pain upper [Recovered/Resolved]
  - Device infusion issue [Unknown]

NARRATIVE: CASE EVENT DATE: 2018
